FAERS Safety Report 23388918 (Version 1)
Quarter: 2024Q1

REPORT INFORMATION
  Report Type: Spontaneous
  Country: US (occurrence: None)
  Receive Date: 20240110
  Receipt Date: 20240110
  Transmission Date: 20240409
  Serious: No
  Sender: FDA-Public Use
  Company Number: 2024A006588

PATIENT
  Age: 69 Year
  Sex: Male
  Weight: 68 kg

DRUGS (1)
  1. FARXIGA [Suspect]
     Active Substance: DAPAGLIFLOZIN PROPANEDIOL
     Indication: Diabetes mellitus
     Route: 048
     Dates: start: 20220601, end: 20240102

REACTIONS (3)
  - Genital discomfort [Recovering/Resolving]
  - Pain [Recovering/Resolving]
  - Pruritus genital [Recovering/Resolving]

NARRATIVE: CASE EVENT DATE: 20221010
